FAERS Safety Report 4934804-3 (Version None)
Quarter: 2006Q1

REPORT INFORMATION
  Report Type: 
  Country: None (occurrence: None)
  Receive Date: 20060307
  Receipt Date: 20050829
  Transmission Date: 20060701
  Serious: Yes (Hospitalization)
  Sender: FDA-Public Use
  Company Number: US-MERCK-0508USA05106

PATIENT
  Age: 54 Year
  Sex: Male
  Weight: 82 kg

DRUGS (4)
  1. VIOXX [Suspect]
     Indication: ARTHRITIS
     Route: 048
     Dates: start: 20000119, end: 20040926
  2. VIOXX [Suspect]
     Route: 048
     Dates: start: 20000101, end: 20040926
  3. VIOXX [Suspect]
     Indication: EPICONDYLITIS
     Route: 048
     Dates: start: 20000119, end: 20040926
  4. VIOXX [Suspect]
     Route: 048
     Dates: start: 20000101, end: 20040926

REACTIONS (5)
  - CEREBELLAR INFARCTION [None]
  - CEREBROVASCULAR DISORDER [None]
  - HEADACHE [None]
  - HYPERLIPIDAEMIA [None]
  - HYPERTENSION [None]
